FAERS Safety Report 23300630 (Version 2)
Quarter: 2024Q1

REPORT INFORMATION
  Report Type: 
  Country: IL (occurrence: IL)
  Receive Date: 20231215
  Receipt Date: 20240102
  Transmission Date: 20240410
  Serious: Yes (Other)
  Sender: FDA-Public Use
  Company Number: IL-CELLTRION INC.-2023IL023994

PATIENT

DRUGS (1)
  1. INFLIXIMAB [Suspect]
     Active Substance: INFLIXIMAB
     Indication: Product used for unknown indication
     Dosage: 400 MG,CYCLIC, THERAPY DURATION: 6 TREATMENT CYCLES
     Dates: start: 20221012

REACTIONS (4)
  - Hypoaesthesia [Unknown]
  - Lip swelling [Unknown]
  - Rash [Unknown]
  - Hypersensitivity [Unknown]
